FAERS Safety Report 5649311-2 (Version None)
Quarter: 2008Q1

REPORT INFORMATION
  Report Type: 
  Country: None (occurrence: None)
  Receive Date: 20080304
  Receipt Date: 20071221
  Transmission Date: 20080703
  Serious: No
  Sender: FDA-Public Use
  Company Number: US-BAYER-200810046NA

PATIENT
  Age: 31 Year
  Sex: Male
  Weight: 75 kg

DRUGS (4)
  1. MAGNEVIST [Suspect]
     Indication: NUCLEAR MAGNETIC RESONANCE IMAGING
     Dosage: UNIT DOSE: 15 ML
     Route: 042
     Dates: start: 20071221, end: 20071221
  2. REGLAN [Concomitant]
  3. ACID INHIBITORS [Concomitant]
     Indication: GASTROINTESTINAL DISORDER
     Route: 065
  4. INSULIN [Concomitant]
     Indication: DIABETES MELLITUS
     Route: 065

REACTIONS (1)
  - GASTROOESOPHAGEAL REFLUX DISEASE [None]
